FAERS Safety Report 23697184 (Version 1)
Quarter: 2024Q2

REPORT INFORMATION
  Report Type: Report from Study
  Country: US (occurrence: US)
  Receive Date: 20240402
  Receipt Date: 20240402
  Transmission Date: 20240716
  Serious: Yes (Death, Hospitalization)
  Sender: FDA-Public Use
  Company Number: US-SA-SAC20210730000263

PATIENT
  Sex: Male
  Weight: 72.6 kg

DRUGS (24)
  1. ISATUXIMAB [Suspect]
     Active Substance: ISATUXIMAB
     Indication: Plasma cell myeloma
     Dosage: 753 MG, QD
     Route: 065
     Dates: start: 20210331, end: 20210331
  2. ISATUXIMAB [Suspect]
     Active Substance: ISATUXIMAB
     Dosage: 744 MG, QW
     Route: 065
     Dates: start: 20210407, end: 20210407
  3. ISATUXIMAB [Suspect]
     Active Substance: ISATUXIMAB
     Dosage: 744 MG, BIW
     Route: 065
     Dates: start: 20210505, end: 20210505
  4. ISATUXIMAB [Suspect]
     Active Substance: ISATUXIMAB
     Dosage: 744 MG, QD
     Route: 065
     Dates: start: 20210526, end: 20210526
  5. ISATUXIMAB [Suspect]
     Active Substance: ISATUXIMAB
     Dosage: 739 MG, QD
     Route: 065
     Dates: start: 20210609, end: 20210609
  6. ISATUXIMAB [Suspect]
     Active Substance: ISATUXIMAB
     Dosage: 739 MG, QD
     Route: 065
     Dates: start: 20210623, end: 20210623
  7. DEXAMETHASONE [Suspect]
     Active Substance: DEXAMETHASONE
     Indication: Plasma cell myeloma
     Dosage: 20 MG, QW
     Route: 065
     Dates: start: 20210331, end: 20210331
  8. DEXAMETHASONE [Suspect]
     Active Substance: DEXAMETHASONE
     Dosage: 20 MG, BIW
     Route: 065
     Dates: start: 20210505, end: 20210505
  9. DEXAMETHASONE [Suspect]
     Active Substance: DEXAMETHASONE
     Dosage: 20 MG, BIW
     Route: 065
     Dates: start: 20210526, end: 20210526
  10. LENALIDOMIDE [Suspect]
     Active Substance: LENALIDOMIDE
     Indication: Plasma cell myeloma refractory
     Dosage: UNK
     Dates: start: 20210315, end: 20210411
  11. LENALIDOMIDE [Suspect]
     Active Substance: LENALIDOMIDE
     Dosage: UNK
     Dates: start: 20210412, end: 20210509
  12. LENALIDOMIDE [Suspect]
     Active Substance: LENALIDOMIDE
     Dosage: UNK
     Dates: start: 20210510, end: 20210526
  13. DIPHENHYDRAMINE HYDROCHLORIDE [Concomitant]
     Active Substance: DIPHENHYDRAMINE HYDROCHLORIDE
     Indication: Anaphylaxis prophylaxis
     Dosage: UNK UNK, QCY
     Dates: start: 20210331, end: 20210624
  14. ONDANSETRON HYDROCHLORIDE [Concomitant]
     Active Substance: ONDANSETRON HYDROCHLORIDE
     Indication: Prophylaxis of nausea and vomiting
     Dosage: UNK UNK, QCY
     Dates: start: 20210331, end: 20210610
  15. DURAGESIC [Concomitant]
     Active Substance: FENTANYL
     Indication: Pain
     Dosage: UNK
     Dates: start: 20210609, end: 20210613
  16. EPOETIN ALFA-EPBX [Concomitant]
     Active Substance: EPOETIN ALFA-EPBX
     Indication: Anaemia prophylaxis
     Dosage: UNK
     Dates: start: 20210526, end: 20210610
  17. FINASTERIDE [Concomitant]
     Active Substance: FINASTERIDE
     Indication: Benign prostatic hyperplasia
     Dosage: UNK
     Dates: start: 20121203, end: 20210717
  18. ASPIRIN [Concomitant]
     Active Substance: ASPIRIN
     Indication: Hypertension
     Dosage: UNK
     Dates: start: 20140409, end: 20210717
  19. PRAVASTATIN [Concomitant]
     Active Substance: PRAVASTATIN
     Indication: Hypercholesterolaemia
     Dosage: UNK
     Dates: start: 20140715, end: 20210717
  20. FUROSEMIDE [Concomitant]
     Active Substance: FUROSEMIDE
     Indication: Oedema peripheral
     Dosage: UNK
     Dates: start: 20140715, end: 20210717
  21. FAMOTIDINE [Concomitant]
     Active Substance: FAMOTIDINE
     Indication: Gastrooesophageal reflux disease
     Dosage: UNK
     Dates: start: 20210310, end: 20210717
  22. DULOXETINE [Concomitant]
     Active Substance: DULOXETINE
     Indication: Polyneuropathy
     Dosage: UNK
     Dates: start: 20200909, end: 20210717
  23. ALPHAGAN P [Concomitant]
     Active Substance: BRIMONIDINE TARTRATE
     Indication: Glaucoma
     Dosage: UNK
     Dates: start: 20201203, end: 20210717
  24. LUMIGAN [Concomitant]
     Active Substance: BIMATOPROST
     Indication: Glaucoma
     Dosage: UNK
     Dates: start: 20201203, end: 20210717

REACTIONS (1)
  - Urosepsis [Fatal]

NARRATIVE: CASE EVENT DATE: 20210628
